FAERS Safety Report 9417055 (Version 2)
Quarter: 2013Q3

REPORT INFORMATION
  Report Type: Spontaneous
  Country: US (occurrence: None)
  Receive Date: 20130722
  Receipt Date: 20130816
  Transmission Date: 20140515
  Serious: Yes (Death)
  Sender: FDA-Public Use
  Company Number: UTC-035508

PATIENT
  Age: 54 Year
  Sex: Female
  Weight: 45.45 kg

DRUGS (1)
  1. REMODULIN [Suspect]
     Indication: COR PULMONALE CHRONIC
     Dosage: 87.12 UG/KG (0.0605 UG/KG, 1)
     Route: 058
     Dates: start: 20120119

REACTIONS (1)
  - Death [None]
